FAERS Safety Report 15036530 (Version 2)
Quarter: 2018Q2

REPORT INFORMATION
  Report Type: Report from Study
  Country: GB (occurrence: GB)
  Receive Date: 20180620
  Receipt Date: 20180627
  Transmission Date: 20180711
  Serious: Yes (Hospitalization)
  Sender: FDA-Public Use
  Company Number: GB-PFIZER INC-2018242845

PATIENT
  Age: 3 Year
  Sex: Female

DRUGS (1)
  1. ZOMACTON [Suspect]
     Active Substance: SOMATROPIN
     Indication: PRADER-WILLI SYNDROME
     Dosage: 0.6 MG, DAILY
     Route: 058
     Dates: start: 20170622

REACTIONS (4)
  - Weight increased [Unknown]
  - Pain [Unknown]
  - Drug dose omission [Unknown]
  - Dyspnoea [Unknown]
